FAERS Safety Report 8165545-X (Version None)
Quarter: 2012Q1

REPORT INFORMATION
  Report Type: 
  Country: None (occurrence: None)
  Receive Date: 20120227
  Receipt Date: 20120220
  Transmission Date: 20120608
  Serious: Yes (Death, Hospitalization, Other)
  Sender: FDA-Public Use
  Company Number: JP-GENZYME-THYM-1002953

PATIENT
  Sex: Male
  Weight: 58 kg

DRUGS (17)
  1. THYMOGLOBULIN [Suspect]
     Dosage: 144 MG, QD
     Route: 042
     Dates: start: 20110511, end: 20110511
  2. MELPHALAN [Concomitant]
     Indication: BONE MARROW CONDITIONING REGIMEN
     Dosage: UNK
     Route: 065
     Dates: start: 20110328, end: 20110328
  3. VORICONAZOLE [Concomitant]
     Dosage: UNK
     Route: 065
     Dates: start: 20110427, end: 20110508
  4. FILGRASTIM [Concomitant]
     Indication: INFECTION PROPHYLAXIS
     Dosage: UNK
     Route: 065
     Dates: start: 20110406, end: 20110518
  5. TACROLIMUS [Concomitant]
     Indication: PROPHYLAXIS AGAINST GRAFT VERSUS HOST DISEASE
     Dosage: UNK
     Route: 065
     Dates: start: 20110404, end: 20110518
  6. MEROPENEM [Concomitant]
     Indication: INFECTION PROPHYLAXIS
     Dosage: UNK
     Route: 065
     Dates: start: 20110509, end: 20110518
  7. FLUDARA [Concomitant]
     Indication: BONE MARROW CONDITIONING REGIMEN
     Dosage: UNK
     Route: 065
     Dates: start: 20110324, end: 20110327
  8. VORICONAZOLE [Concomitant]
     Indication: ANTIFUNGAL PROPHYLAXIS
     Dosage: UNK
     Route: 065
     Dates: start: 20110326, end: 20110508
  9. METHYLPREDNISOLONE SODIUM SUCCINATE [Concomitant]
     Dosage: UNK
     Route: 065
     Dates: start: 20110412, end: 20110518
  10. METHYLPREDNISOLONE SODIUM SUCCINATE [Concomitant]
     Indication: PREMEDICATION
     Dosage: UNK
     Route: 065
     Dates: start: 20110323, end: 20110518
  11. MICAFUNGIN SODIUM [Concomitant]
     Indication: ANTIFUNGAL PROPHYLAXIS
     Dosage: UNK
     Route: 065
     Dates: start: 20110509, end: 20110518
  12. THYMOGLOBULIN [Suspect]
     Indication: ACUTE GRAFT VERSUS HOST DISEASE
     Dosage: 72 MG, QD
     Route: 042
     Dates: start: 20110428, end: 20110428
  13. ACYCLOVIR [Concomitant]
     Indication: ANTIVIRAL PROPHYLAXIS
     Dosage: UNK
     Route: 065
     Dates: start: 20110202, end: 20110508
  14. HUMAN RED BLOOD CELLS [Concomitant]
     Indication: MYELODYSPLASTIC SYNDROME
     Dosage: UNK
     Route: 065
     Dates: start: 20100601, end: 20110518
  15. BIAPENEM [Concomitant]
     Indication: INFECTION PROPHYLAXIS
     Dosage: UNK
     Route: 065
     Dates: start: 20110407, end: 20110421
  16. THYMOGLOBULIN [Suspect]
     Indication: BONE MARROW CONDITIONING REGIMEN
     Dosage: 116.6 MG, QD
     Route: 042
     Dates: start: 20110322, end: 20110323
  17. PLATELETS [Concomitant]
     Indication: MYELODYSPLASTIC SYNDROME
     Dosage: UNK
     Route: 065
     Dates: start: 20100601, end: 20110518

REACTIONS (5)
  - CYTOMEGALOVIRUS VIRAEMIA [None]
  - GRAFT VERSUS HOST DISEASE IN LIVER [None]
  - DISSEMINATED INTRAVASCULAR COAGULATION [None]
  - MYELODYSPLASTIC SYNDROME [None]
  - ACUTE GRAFT VERSUS HOST DISEASE [None]
